FAERS Safety Report 15902053 (Version 1)
Quarter: 2019Q1

REPORT INFORMATION
  Report Type: Spontaneous
  Country: US (occurrence: US)
  Receive Date: 20190111
  Receipt Date: 20190111
  Transmission Date: 20190417
  Serious: No
  Sender: FDA-Public Use
  Company Number: None

PATIENT
  Age: 35 Year
  Sex: Female

DRUGS (1)
  1. HYDROXYPROGESTRONE 250 MG/ML (1ML SDV) [Suspect]
     Active Substance: HYDROXYPROGESTERONE
     Route: 030
     Dates: start: 20181107

REACTIONS (1)
  - Dizziness [None]

NARRATIVE: CASE EVENT DATE: 20181107
